FAERS Safety Report 8105400-4 (Version None)
Quarter: 2012Q1

REPORT INFORMATION
  Report Type: 
  Country: None (occurrence: None)
  Receive Date: 20120201
  Receipt Date: 20120124
  Transmission Date: 20120608
  Serious: Yes (Hospitalization)
  Sender: FDA-Public Use
  Company Number: DE-ASTRAZENECA-2012SE04934

PATIENT
  Sex: Male

DRUGS (2)
  1. AURORIX [Interacting]
     Route: 048
     Dates: start: 20120120
  2. METOPROLOL TARTRATE AND HYDROCHLOROTHIAZIDE [Suspect]
     Route: 048

REACTIONS (3)
  - BLOOD PRESSURE INCREASED [None]
  - HEART RATE INCREASED [None]
  - DRUG INTERACTION [None]
